FAERS Safety Report 9156254 (Version 2)
Quarter: 2013Q1

REPORT INFORMATION
  Report Type: Spontaneous
  Country: CA (occurrence: CA)
  Receive Date: 20130311
  Receipt Date: 20130326
  Transmission Date: 20140127
  Serious: Yes (Other)
  Sender: FDA-Public Use
  Company Number: CA-ELI_LILLY_AND_COMPANY-CA201302008871

PATIENT
  Sex: Female

DRUGS (6)
  1. CYMBALTA [Suspect]
     Indication: DEPRESSION
     Dosage: 30 MG, UNK
  2. CYMBALTA [Suspect]
     Dosage: 60 MG, UNK
     Dates: end: 201302
  3. RANITIDINE [Concomitant]
     Dosage: UNK
  4. CODEINE [Concomitant]
     Dosage: UNK, PRN
  5. ATIVAN [Concomitant]
  6. ZOPICLONE [Concomitant]
     Indication: SLEEP DISORDER

REACTIONS (30)
  - Myocardial infarction [Unknown]
  - Serotonin syndrome [Unknown]
  - Liver function test abnormal [Unknown]
  - Joint swelling [Unknown]
  - Tinnitus [Unknown]
  - Paraesthesia [Unknown]
  - Chest discomfort [Unknown]
  - Weight increased [Unknown]
  - Vaginal haemorrhage [Unknown]
  - Breast swelling [Unknown]
  - Pain in extremity [Unknown]
  - Intentional drug misuse [Unknown]
  - Drug withdrawal syndrome [Unknown]
  - Pain [Unknown]
  - Pollakiuria [Unknown]
  - Optic neuritis [Unknown]
  - Joint stiffness [Unknown]
  - Erythema [Unknown]
  - Dyspepsia [Unknown]
  - Groin pain [Unknown]
  - Local swelling [Unknown]
  - Breast pain [Unknown]
  - Fatigue [Unknown]
  - Hypotonia [Unknown]
  - Bone pain [Unknown]
  - Abdominal pain upper [Unknown]
  - Diarrhoea [Unknown]
  - Oedema [Unknown]
  - Dyspnoea [Unknown]
  - Cardiac disorder [Unknown]
